FAERS Safety Report 14805547 (Version 1)
Quarter: 2018Q2

REPORT INFORMATION
  Report Type: Spontaneous
  Country: US (occurrence: US)
  Receive Date: 20180425
  Receipt Date: 20180425
  Transmission Date: 20180711
  Serious: No
  Sender: FDA-Public Use
  Company Number: US-ASTRAZENECA-2018SE49788

PATIENT
  Age: 656 Month
  Sex: Female

DRUGS (8)
  1. SEROQUEL [Suspect]
     Active Substance: QUETIAPINE FUMARATE
     Indication: DEPRESSION
     Dosage: QUETIAPINE FUMARATE, 25 MG AT NIGHT
     Route: 048
     Dates: start: 201803
  2. SEROQUEL [Suspect]
     Active Substance: QUETIAPINE FUMARATE
     Indication: INSOMNIA
     Dosage: LESS THAN 12.5 MG
     Route: 048
  3. SEROQUEL [Suspect]
     Active Substance: QUETIAPINE FUMARATE
     Indication: INSOMNIA
     Dosage: QUETIAPINE FUMARATE, 50 MG AT NIGHT
     Route: 048
  4. SEROQUEL [Suspect]
     Active Substance: QUETIAPINE FUMARATE
     Indication: INSOMNIA
     Dosage: QUETIAPINE FUMARATE, 25 MG AT NIGHT
     Route: 048
     Dates: start: 201803
  5. SEROQUEL [Suspect]
     Active Substance: QUETIAPINE FUMARATE
     Indication: INSOMNIA
     Dosage: QUETIAPINE FUMARATE, 12.5 MG AT NIGHT BY SPILLTING 25 MG TABLET
     Route: 048
  6. SEROQUEL [Suspect]
     Active Substance: QUETIAPINE FUMARATE
     Indication: DEPRESSION
     Dosage: QUETIAPINE FUMARATE, 50 MG AT NIGHT
     Route: 048
  7. SEROQUEL [Suspect]
     Active Substance: QUETIAPINE FUMARATE
     Indication: DEPRESSION
     Dosage: QUETIAPINE FUMARATE, 12.5 MG AT NIGHT BY SPILLTING 25 MG TABLET
     Route: 048
  8. SEROQUEL [Suspect]
     Active Substance: QUETIAPINE FUMARATE
     Indication: DEPRESSION
     Dosage: LESS THAN 12.5 MG
     Route: 048

REACTIONS (6)
  - Feeling abnormal [Unknown]
  - Pruritus generalised [Unknown]
  - Histamine intolerance [Unknown]
  - Off label use [Unknown]
  - Insomnia [Unknown]
  - Wrong technique in product usage process [Unknown]

NARRATIVE: CASE EVENT DATE: 201803
